FAERS Safety Report 13118473 (Version 1)
Quarter: 2017Q1

REPORT INFORMATION
  Report Type: Spontaneous
  Country: CN (occurrence: CN)
  Receive Date: 20170116
  Receipt Date: 20170116
  Transmission Date: 20170428
  Serious: Yes (Other)
  Sender: FDA-Public Use
  Company Number: CN-009507513-1701CHN006429

PATIENT
  Age: 63 Year
  Sex: Female
  Weight: 60 kg

DRUGS (2)
  1. VFEND [Suspect]
     Active Substance: VORICONAZOLE
     Indication: LUNG INFECTION
     Dosage: 200 MG, BID
     Route: 041
     Dates: start: 20161006, end: 20161009
  2. TIENAM [Suspect]
     Active Substance: CILASTATIN SODIUM\IMIPENEM
     Indication: LUNG INFECTION
     Dosage: 1 G, TID
     Route: 041
     Dates: start: 20161006, end: 20161009

REACTIONS (1)
  - Halo vision [Recovered/Resolved]

NARRATIVE: CASE EVENT DATE: 20161008
